FAERS Safety Report 4916404-4 (Version None)
Quarter: 2006Q1

REPORT INFORMATION
  Report Type: 
  Country: None (occurrence: None)
  Receive Date: 20060217
  Receipt Date: 20050930
  Transmission Date: 20060701
  Serious: Yes (Death, Hospitalization)
  Sender: FDA-Public Use
  Company Number: PR-MERCK-0510USA00805

PATIENT
  Age: 80 Year
  Sex: Male
  Weight: 68 kg

DRUGS (2)
  1. VIOXX [Suspect]
     Route: 048
     Dates: start: 20010101, end: 20010101
  2. VIOXX [Suspect]
     Route: 048

REACTIONS (12)
  - ARRHYTHMIA [None]
  - BRONCHOPNEUMONIA [None]
  - CARDIAC DISORDER [None]
  - CARDIO-RESPIRATORY ARREST [None]
  - CEREBROVASCULAR ACCIDENT [None]
  - CORONARY ARTERY DISEASE [None]
  - DIVERTICULUM [None]
  - HEPATIC STEATOSIS [None]
  - HYPERTENSIVE CRISIS [None]
  - MYOCARDIAL INFARCTION [None]
  - PULMONARY EMBOLISM [None]
  - RENAL CYST [None]
